FAERS Safety Report 15448011 (Version 3)
Quarter: 2019Q1

REPORT INFORMATION
  Report Type: Spontaneous
  Country: US (occurrence: US)
  Receive Date: 20180928
  Receipt Date: 20190330
  Transmission Date: 20190417
  Serious: Yes (Other)
  Sender: FDA-Public Use
  Company Number: US-PRINSTON PHARMACEUTICAL INC.-2018PRN01404

PATIENT
  Age: 58 Year
  Sex: Female
  Weight: 52.15 kg

DRUGS (4)
  1. DULOXETINE. [Suspect]
     Active Substance: DULOXETINE
     Dosage: OPENED CAPSULE AND REMOVED 20% OF THE MICROBEADS, 1X/DAY
     Route: 048
     Dates: start: 20180801, end: 20180815
  2. DULOXETINE. [Suspect]
     Active Substance: DULOXETINE
     Indication: ANXIETY
     Dosage: 15 MG, 1X/DAY
     Route: 048
     Dates: start: 201701, end: 2017
  3. DULOXETINE. [Suspect]
     Active Substance: DULOXETINE
     Indication: ANXIETY
     Dosage: 30 MG, 1X/DAY
     Route: 048
     Dates: start: 20180717, end: 20180731
  4. DULOXETINE. [Suspect]
     Active Substance: DULOXETINE
     Indication: ANXIETY
     Dosage: 60 MG, 1X/DAY
     Route: 048
     Dates: start: 2017, end: 20180717

REACTIONS (21)
  - Osteoporosis [Not Recovered/Not Resolved]
  - Ear discomfort [Unknown]
  - Mixed deafness [Not Recovered/Not Resolved]
  - Labyrinthitis [Unknown]
  - Vertigo positional [Recovering/Resolving]
  - Weight decreased [Not Recovered/Not Resolved]
  - Anxiety [Recovered/Resolved]
  - Tinnitus [Recovered/Resolved]
  - Oropharyngeal pain [Recovered/Resolved]
  - Nervousness [Recovered/Resolved]
  - Tympanosclerosis [Unknown]
  - Nausea [Recovered/Resolved]
  - Feeling abnormal [Unknown]
  - Central nervous system lesion [Unknown]
  - Intentional product misuse [Recovered/Resolved]
  - Rhinorrhoea [Recovered/Resolved]
  - Arthralgia [Recovered/Resolved]
  - Neck pain [Recovered/Resolved]
  - Eye pruritus [Recovered/Resolved]
  - Cerumen impaction [Recovered/Resolved]
  - Dizziness [Recovered/Resolved]

NARRATIVE: CASE EVENT DATE: 2018
